FAERS Safety Report 7043229-9 (Version None)
Quarter: 2010Q4

REPORT INFORMATION
  Report Type: 
  Country: None (occurrence: None)
  Receive Date: 20101013
  Receipt Date: 20100330
  Transmission Date: 20110411
  Serious: No
  Sender: FDA-Public Use
  Company Number: US-ASTRAZENECA-2010SE10678

PATIENT
  Age: 60 Year
  Sex: Female
  Weight: 66.2 kg

DRUGS (6)
  1. SYMBICORT [Suspect]
     Indication: ASTHMA
     Dosage: 160/4.5 2 PUFF
     Route: 055
  2. MAXAIR [Concomitant]
  3. VITAMIN B-12 [Concomitant]
  4. ESTRADIOL [Concomitant]
  5. ALAVERT [Concomitant]
  6. SINGULAIR [Concomitant]

REACTIONS (2)
  - ACNE [None]
  - RASH [None]
